FAERS Safety Report 17056171 (Version 1)
Quarter: 2019Q4

REPORT INFORMATION
  Report Type: Spontaneous
  Country: IT (occurrence: IT)
  Receive Date: 20191121
  Receipt Date: 20191121
  Transmission Date: 20200122
  Serious: Yes (Hospitalization, Other)
  Sender: FDA-Public Use
  Company Number: IT-MACLEODS PHARMACEUTICALS US LTD-MAC2019023829

PATIENT

DRUGS (1)
  1. CLOBETASOL [Suspect]
     Active Substance: CLOBETASOL
     Indication: PSORIASIS
     Dosage: 100 GRAM CREAM Q.W. FOR 8 YEARS
     Route: 061

REACTIONS (3)
  - Spinal compression fracture [Unknown]
  - Cushing^s syndrome [Recovered/Resolved]
  - Osteoporosis [Unknown]
